FAERS Safety Report 17405441 (Version 1)
Quarter: 2020Q1

REPORT INFORMATION
  Report Type: Spontaneous
  Country: US (occurrence: US)
  Receive Date: 20200212
  Receipt Date: 20200212
  Transmission Date: 20200409
  Serious: Yes (Other)
  Sender: FDA-Public Use
  Company Number: US-GILEAD-2020-0450420

PATIENT
  Sex: Male

DRUGS (1)
  1. HARVONI [Suspect]
     Active Substance: LEDIPASVIR\SOFOSBUVIR
     Indication: HEPATITIS C
     Dosage: UNK
     Route: 065
     Dates: start: 20150515

REACTIONS (6)
  - Pneumothorax [Unknown]
  - Oedema [Unknown]
  - Surgery [Unknown]
  - Rib fracture [Unknown]
  - Splenic rupture [Unknown]
  - Chest tube insertion [Unknown]
